FAERS Safety Report 17310208 (Version 1)
Quarter: 2020Q1

REPORT INFORMATION
  Report Type: Spontaneous
  Country: US (occurrence: US)
  Receive Date: 20200123
  Receipt Date: 20200123
  Transmission Date: 20200409
  Serious: No
  Sender: FDA-Public Use
  Company Number: US-ROCHE-2278331

PATIENT
  Sex: Female
  Weight: 49.94 kg

DRUGS (1)
  1. RITUXAN [Suspect]
     Active Substance: RITUXIMAB
     Indication: RHEUMATOID ARTHRITIS
     Route: 042

REACTIONS (7)
  - Aphthous ulcer [Unknown]
  - Muscle spasms [Unknown]
  - Influenza like illness [Unknown]
  - Migraine [Unknown]
  - Fatigue [Unknown]
  - Arthralgia [Unknown]
  - Faeces discoloured [Unknown]
